FAERS Safety Report 24659420 (Version 1)
Quarter: 2024Q4

REPORT INFORMATION
  Report Type: Other
  Country: CA (occurrence: CA)
  Receive Date: 20241125
  Receipt Date: 20241125
  Transmission Date: 20250114
  Serious: Yes (Other)
  Sender: PFIZER
  Company Number: CA-PFIZER INC-202400307508

PATIENT
  Age: 73 Year
  Sex: Female

DRUGS (1)
  1. METHOTREXATE SODIUM [Suspect]
     Active Substance: METHOTREXATE SODIUM
     Indication: Dermatitis atopic
     Route: 065

REACTIONS (5)
  - Cough [Recovering/Resolving]
  - Hypersensitivity pneumonitis [Recovering/Resolving]
  - Interstitial lung disease [Recovering/Resolving]
  - Drug ineffective for unapproved indication [Recovering/Resolving]
  - Off label use [Unknown]
